FAERS Safety Report 16717931 (Version 1)
Quarter: 2019Q3

REPORT INFORMATION
  Report Type: Report from Study
  Country: US (occurrence: US)
  Receive Date: 20190819
  Receipt Date: 20190819
  Transmission Date: 20191005
  Serious: No
  Sender: FDA-Public Use
  Company Number: PHEH2019US033647

PATIENT
  Sex: Male

DRUGS (3)
  1. INSULIN [Concomitant]
     Active Substance: INSULIN NOS
     Dosage: 65 UNITS OF INSULIN FOR BOTH BREAKFAST/LUNCH AND THEN 60-65 UNITS FOR DINNER, TID
     Route: 065
  2. INSULIN [Concomitant]
     Active Substance: INSULIN NOS
     Indication: PRODUCT USED FOR UNKNOWN INDICATION
     Dosage: 70 UNITS OF INSULIN FOR BOTH BREAKFAST/LUNCH AND THEN 85 UNITS OF INSULIN AT DINNER, TID
     Route: 065
  3. ENTRESTO [Suspect]
     Active Substance: SACUBITRIL\VALSARTAN
     Indication: PRODUCT USED FOR UNKNOWN INDICATION
     Dosage: UNK
     Route: 048

REACTIONS (5)
  - Heart rate irregular [Unknown]
  - Oxygen consumption decreased [Unknown]
  - Hypertension [Unknown]
  - Heart rate increased [Unknown]
  - Blood glucose decreased [Unknown]
